FAERS Safety Report 7579481-0 (Version None)
Quarter: 2011Q2

REPORT INFORMATION
  Report Type: 
  Country: None (occurrence: None)
  Receive Date: 20110629
  Receipt Date: 20090930
  Transmission Date: 20111010
  Serious: Yes (Other)
  Sender: FDA-Public Use
  Company Number: US-BAYER-200934714NA

PATIENT
  Age: 65 Year
  Sex: Male
  Weight: 120.18 kg

DRUGS (32)
  1. TRASYLOL [Suspect]
     Dosage: 100 ML PUMP PRIME DOSE
     Route: 042
     Dates: start: 20050408, end: 20050408
  2. ALLOPURINOL [Concomitant]
     Dosage: 300 MG, QD
     Route: 048
  3. LANTUS [Concomitant]
     Dosage: 15 UNITS AT SUPPER
  4. PROMETHAZINE [Concomitant]
     Dosage: 25MG 1/2 TABLET
     Route: 048
  5. NEURONTIN [Concomitant]
     Dosage: 600 MG, UNK
     Route: 048
  6. VERSED [Concomitant]
     Dosage: UNK
     Route: 042
     Dates: start: 20050408
  7. LASIX [Concomitant]
     Dosage: UNKNOWN
  8. BENADRYL [Concomitant]
     Dosage: DURING SURGERY
  9. EPOGEN [Concomitant]
     Dosage: 2000 U FOR 7 DAYS
     Route: 058
  10. TRASYLOL [Suspect]
     Dosage: 400ML
     Route: 042
     Dates: start: 20050408, end: 20050408
  11. TORSEMIDE [Concomitant]
     Dosage: 10 MG, BID
     Route: 048
  12. COZAAR [Concomitant]
     Dosage: 100MG/25 DAILY
     Route: 048
  13. ANCEF [Concomitant]
     Dosage: DURING SURGERY
  14. GLIPIZIDE [Concomitant]
     Dosage: UNK UNK, QD
     Route: 048
  15. NORGESIC FORTE [Concomitant]
     Dosage: UNK UNK, TID
     Route: 048
  16. TRASYLOL [Suspect]
     Indication: CORONARY ARTERY BYPASS
     Dosage: 1 ML
     Route: 042
     Dates: start: 20050408, end: 20050408
  17. HEPARIN [Concomitant]
     Dosage: DURING SURGERY
  18. PROTONIX [Concomitant]
  19. AVAPRO [Concomitant]
     Dosage: UNK
     Dates: start: 20010101
  20. FUROSEMIDE [Concomitant]
     Dosage: UNK
     Dates: start: 20050101
  21. NIMBEX [Concomitant]
     Route: 042
  22. AMOXICILLIN [Concomitant]
     Dosage: UNK UNK, TID
     Route: 048
  23. LASIX [Concomitant]
     Dosage: 20 MG, UNK DURING SURGERY
     Route: 042
  24. XANAX [Concomitant]
  25. MUCOMYST [Concomitant]
     Dosage: INHALATION, BID
  26. HYZAAR [Concomitant]
     Dosage: 100 MG/25 MG DAILY
  27. PROTAMINE SULFATE [Concomitant]
     Dosage: 450 MG, UNK
     Route: 042
     Dates: start: 20050408, end: 20050408
  28. TRASYLOL [Suspect]
     Dosage: 25 CC
     Route: 042
     Dates: start: 20050408, end: 20050408
  29. NITROGLYCERIN [Concomitant]
  30. ALPRAZOLAM [Concomitant]
     Dosage: 25MG EVERY 8 HOURS
  31. AMBIEN [Concomitant]
     Dosage: 10MG BEFORE SLEEP
  32. RED BLOOD CELLS [Concomitant]
     Dosage: 3 U, UNK

REACTIONS (8)
  - RENAL FAILURE [None]
  - INJURY [None]
  - ANHEDONIA [None]
  - DEPRESSION [None]
  - ANXIETY [None]
  - FEAR [None]
  - PAIN [None]
  - UNEVALUABLE EVENT [None]
